FAERS Safety Report 16151493 (Version 1)
Quarter: 2019Q2

REPORT INFORMATION
  Report Type: Spontaneous
  Country: US (occurrence: US)
  Receive Date: 20190403
  Receipt Date: 20190403
  Transmission Date: 20190711
  Serious: No
  Sender: FDA-Public Use
  Company Number: US-009507513-1903USA008650

PATIENT
  Sex: Male

DRUGS (1)
  1. DULERA [Suspect]
     Active Substance: FORMOTEROL FUMARATE DIHYDRATE\MOMETASONE FUROATE
     Route: 055

REACTIONS (4)
  - Sinusitis [Not Recovered/Not Resolved]
  - Cough [Not Recovered/Not Resolved]
  - Vomiting [Not Recovered/Not Resolved]
  - Sneezing [Not Recovered/Not Resolved]
